FAERS Safety Report 4336059-X (Version None)
Quarter: 2004Q2

REPORT INFORMATION
  Report Type: 
  Country: None (occurrence: None)
  Receive Date: 20040406
  Receipt Date: 20040324
  Transmission Date: 20050107
  Serious: Yes (Hospitalization)
  Sender: FDA-Public Use
  Company Number: 2004AP01556

PATIENT
  Age: 64 Year
  Sex: Male

DRUGS (7)
  1. CASODEX [Suspect]
     Indication: PROSTATE CANCER
     Dosage: 80 MG DAILY PO
     Route: 048
     Dates: start: 20030227, end: 20040222
  2. HARNAL [Concomitant]
  3. VOLTAREN [Concomitant]
  4. MARZULENE [Concomitant]
  5. LEUPROLIDE ACETATE [Concomitant]
  6. PROHEPARUM [Concomitant]
  7. URSO [Concomitant]

REACTIONS (2)
  - PANCREATITIS ACUTE [None]
  - WHITE BLOOD CELL COUNT INCREASED [None]
